FAERS Safety Report 10245171 (Version 1)
Quarter: 2014Q2

REPORT INFORMATION
  Report Type: Spontaneous
  Country: JP (occurrence: JP)
  Receive Date: 20140618
  Receipt Date: 20140618
  Transmission Date: 20141212
  Serious: Yes (Hospitalization)
  Sender: FDA-Public Use
  Company Number: JP-WATSON-2014-13704

PATIENT
  Age: 67 Year
  Sex: Female

DRUGS (2)
  1. METRONIDAZOLE (UNKNOWN) [Suspect]
     Indication: CLOSTRIDIUM DIFFICILE INFECTION
     Dosage: 1.5 G, DAILY
     Route: 065
  2. METRONIDAZOLE (UNKNOWN) [Suspect]
     Indication: DIARRHOEA

REACTIONS (1)
  - Toxic encephalopathy [Recovering/Resolving]
